FAERS Safety Report 9834772 (Version 1)
Quarter: 2014Q1

REPORT INFORMATION
  Report Type: Spontaneous
  Country: US (occurrence: US)
  Receive Date: 20140122
  Receipt Date: 20140122
  Transmission Date: 20141002
  Serious: Yes (Other)
  Sender: FDA-Public Use
  Company Number: US-BAYER-2014-009678

PATIENT
  Age: 39 Year
  Sex: Female

DRUGS (2)
  1. YASMIN [Suspect]
     Indication: CONTRACEPTION
  2. DIFLUCAN [Concomitant]

REACTIONS (2)
  - Thrombophlebitis superficial [None]
  - Deep vein thrombosis [None]
